FAERS Safety Report 24678224 (Version 1)
Quarter: 2024Q4

REPORT INFORMATION
  Report Type: Spontaneous
  Country: PL (occurrence: PL)
  Receive Date: 20241129
  Receipt Date: 20241129
  Transmission Date: 20250114
  Serious: Yes (Other)
  Sender: AMGEN
  Company Number: None

PATIENT
  Age: 71 Year
  Sex: Female

DRUGS (7)
  1. PROLIA [Suspect]
     Active Substance: DENOSUMAB
     Indication: Osteopenia
     Dosage: UNK
     Route: 065
     Dates: start: 20210917, end: 20210917
  2. TRIMEDUCTAN [Concomitant]
     Dosage: DOSAGE: FROM A LONG TIME
     Route: 048
  3. APO ATORVA [Concomitant]
     Indication: Blood cholesterol
     Dosage: 1 DOSAGE FORM (Q24H)
     Route: 048
  4. SULODEXIDE [Concomitant]
     Active Substance: SULODEXIDE
     Dosage: 1 DOSAGE FORM (Q24H)
     Route: 048
  5. NEBILENIN [Concomitant]
     Dosage: DOSAGE: FROM A FEW YEARS (Q24H)
     Route: 048
  6. ZOLPIDEM TARTRATE [Concomitant]
     Active Substance: ZOLPIDEM TARTRATE
     Dosage: DOSAGE: FROM 1.5 MONTH (Q24H)
     Route: 048
  7. ACARD [Concomitant]
     Dosage: UNK

REACTIONS (10)
  - Injection site rash [Not Recovered/Not Resolved]
  - Erythema [Not Recovered/Not Resolved]
  - Arthralgia [Not Recovered/Not Resolved]
  - Myalgia [Not Recovered/Not Resolved]
  - Pain [Not Recovered/Not Resolved]
  - Joint stiffness [Not Recovered/Not Resolved]
  - Asthenia [Not Recovered/Not Resolved]
  - Constipation [Not Recovered/Not Resolved]
  - Urinary incontinence [Not Recovered/Not Resolved]
  - Dyspnoea [Not Recovered/Not Resolved]
